FAERS Safety Report 7722939-1 (Version None)
Quarter: 2011Q3

REPORT INFORMATION
  Report Type: 
  Country: None (occurrence: None)
  Receive Date: 20110825
  Receipt Date: 20110817
  Transmission Date: 20111222
  Serious: Yes (Hospitalization)
  Sender: FDA-Public Use
  Company Number: 15981327

PATIENT
  Age: 89 Year
  Sex: Male

DRUGS (6)
  1. LASIX [Concomitant]
  2. OMEPRAZOLE [Concomitant]
  3. NITRODERM [Concomitant]
  4. COUMADIN [Suspect]
     Indication: ATRIAL FIBRILLATION
     Dosage: 1 DOSAGE FORM 1 DAY, ORAL
     Route: 048
     Dates: start: 20090101, end: 20110706
  5. DILTIAZEM HCL [Concomitant]
  6. TAREG (VALSARTAN) [Concomitant]

REACTIONS (3)
  - MUSCLE HAEMORRHAGE [None]
  - ANAEMIA [None]
  - INTERNATIONAL NORMALISED RATIO INCREASED [None]
